FAERS Safety Report 5729327-8 (Version None)
Quarter: 2008Q2

REPORT INFORMATION
  Report Type: 
  Country: None (occurrence: None)
  Receive Date: 20080506
  Receipt Date: 20080425
  Transmission Date: 20081010
  Serious: Yes (Other)
  Sender: FDA-Public Use
  Company Number: US-PFIZER INC-2008037282

PATIENT
  Sex: Female
  Weight: 59 kg

DRUGS (5)
  1. XALATAN [Suspect]
     Indication: GLAUCOMA
     Route: 047
  2. ALL OTHER THERAPEUTIC PRODUCTS [Concomitant]
  3. OMEPRAZOLE [Concomitant]
  4. METOPROLOL TARTRATE [Concomitant]
  5. LEVOBUNOLOL HCL [Concomitant]

REACTIONS (2)
  - DRUG INEFFECTIVE [None]
  - GLAUCOMA [None]
